FAERS Safety Report 11054162 (Version 2)
Quarter: 2015Q2

REPORT INFORMATION
  Report Type: Spontaneous
  Country: GB (occurrence: GB)
  Receive Date: 20150422
  Receipt Date: 20150429
  Transmission Date: 20150821
  Serious: Yes (Other)
  Sender: FDA-Public Use
  Company Number: GB-SUN PHARMACEUTICAL INDUSTRIES LTD-2015R1-96011

PATIENT
  Age: 35 Year
  Sex: Female

DRUGS (1)
  1. AMLODIPINE [Suspect]
     Active Substance: AMLODIPINE BESYLATE
     Indication: PRODUCT USED FOR UNKNOWN INDICATION
     Dosage: UNK
     Route: 061

REACTIONS (7)
  - Mydriasis [Recovered/Resolved]
  - Accidental exposure to product [Unknown]
  - Pupil fixed [Recovered/Resolved]
  - Vision blurred [Recovered/Resolved]
  - Occupational exposure to product [Unknown]
  - Visual acuity reduced [Recovered/Resolved]
  - Accommodation disorder [Recovered/Resolved]
